FAERS Safety Report 17845844 (Version 1)
Quarter: 2020Q2

REPORT INFORMATION
  Report Type: Spontaneous
  Country: US (occurrence: US)
  Receive Date: 20200531
  Receipt Date: 20200531
  Transmission Date: 20200714
  Serious: No
  Sender: FDA-Public Use
  Company Number: None

PATIENT
  Age: 48 Year
  Sex: Female

DRUGS (1)
  1. CUVITRU [Suspect]
     Active Substance: HUMAN IMMUNOGLOBULIN G
     Indication: IMMUNODEFICIENCY
     Route: 058
     Dates: start: 20200423

REACTIONS (4)
  - Anaphylactic shock [None]
  - Hypersensitivity [None]
  - Dyspnoea [None]
  - Haemolytic anaemia [None]

NARRATIVE: CASE EVENT DATE: 20200507
